FAERS Safety Report 16043345 (Version 1)
Quarter: 2019Q1

REPORT INFORMATION
  Report Type: Spontaneous
  Country: GB (occurrence: GB)
  Receive Date: 20190306
  Receipt Date: 20190306
  Transmission Date: 20190418
  Serious: Yes (Other)
  Sender: FDA-Public Use
  Company Number: GB-MYLANLABS-2019M1020647

PATIENT
  Age: 45 Year
  Sex: Female
  Weight: 76.2 kg

DRUGS (2)
  1. LANSOPRAZOLE. [Concomitant]
     Active Substance: LANSOPRAZOLE
     Dosage: UNK
  2. DYMISTA [Suspect]
     Active Substance: AZELASTINE HYDROCHLORIDE\FLUTICASONE PROPIONATE
     Indication: UPPER-AIRWAY COUGH SYNDROME
     Dosage: 100 MICROGRAM, QD
     Route: 045
     Dates: start: 20171212, end: 20180812

REACTIONS (10)
  - Abnormal weight gain [Recovering/Resolving]
  - Alopecia [Unknown]
  - Wheezing [Recovering/Resolving]
  - Blister [Unknown]
  - Papule [Recovering/Resolving]
  - Hormone level abnormal [Unknown]
  - Furuncle [Recovering/Resolving]
  - Ear infection [Recovering/Resolving]
  - Oropharyngeal pain [Recovering/Resolving]
  - Appetite disorder [Unknown]

NARRATIVE: CASE EVENT DATE: 20180201
